FAERS Safety Report 25105663 (Version 1)
Quarter: 2025Q1

REPORT INFORMATION
  Report Type: Spontaneous
  Country: US (occurrence: US)
  Receive Date: 20250321
  Receipt Date: 20250321
  Transmission Date: 20250409
  Serious: No
  Sender: ESPERION THERAPEUTICS
  Company Number: US-ESPERIONTHERAPEUTICS-2024USA01911

PATIENT
  Sex: Male

DRUGS (5)
  1. NEXLETOL [Suspect]
     Active Substance: BEMPEDOIC ACID
     Indication: Blood cholesterol increased
     Route: 048
  2. NEXLETOL [Suspect]
     Active Substance: BEMPEDOIC ACID
     Dosage: UNK, TIW
     Route: 048
     Dates: start: 202409, end: 2024
  3. NEXLETOL [Suspect]
     Active Substance: BEMPEDOIC ACID
     Dosage: UNK, QD
     Route: 048
     Dates: start: 2024
  4. REPATHA [Concomitant]
     Active Substance: EVOLOCUMAB
     Route: 065
  5. VASCEPA [Concomitant]
     Active Substance: ICOSAPENT ETHYL
     Route: 065

REACTIONS (2)
  - Arthralgia [Unknown]
  - Off label use [Recovered/Resolved]

NARRATIVE: CASE EVENT DATE: 20240901
